FAERS Safety Report 7086474-9 (Version None)
Quarter: 2010Q4

REPORT INFORMATION
  Report Type: 
  Country: None (occurrence: None)
  Receive Date: 20101105
  Receipt Date: 20101029
  Transmission Date: 20110411
  Serious: Yes (Other)
  Sender: FDA-Public Use
  Company Number: US-CEPHALON-2010002581

PATIENT
  Sex: Male
  Weight: 61 kg

DRUGS (3)
  1. PROVIGIL [Suspect]
     Indication: NARCOLEPSY
     Route: 048
     Dates: start: 20081001, end: 20091001
  2. NUVIGIL [Suspect]
     Indication: NARCOLEPSY
     Route: 048
     Dates: start: 20091109, end: 20091212
  3. NUVIGIL [Suspect]
     Route: 048
     Dates: start: 20091201, end: 20100608

REACTIONS (8)
  - ANGER [None]
  - DECREASED APPETITE [None]
  - DEPRESSION [None]
  - DRUG INEFFECTIVE [None]
  - DRUG PRESCRIBING ERROR [None]
  - HEADACHE [None]
  - NAUSEA [None]
  - PAIN IN EXTREMITY [None]
